FAERS Safety Report 25777182 (Version 1)
Quarter: 2025Q3

REPORT INFORMATION
  Report Type: Spontaneous
  Country: US (occurrence: US)
  Receive Date: 20250909
  Receipt Date: 20250909
  Transmission Date: 20251021
  Serious: No
  Sender: DOMPE FARMACEUTICI
  Company Number: US-FARMAPROD-202410-3534

PATIENT
  Sex: Female
  Weight: 53.98 kg

DRUGS (21)
  1. OXERVATE [Suspect]
     Active Substance: CENEGERMIN-BKBJ
     Indication: Neurotrophic keratopathy
     Route: 047
     Dates: start: 20240906
  2. BIOTIN [Concomitant]
     Active Substance: BIOTIN
  3. B12 ACTIVE [Concomitant]
  4. CHONDROITIN SULFATE (BOVINE)\GLUCOSAMINE SULFATE [Concomitant]
     Active Substance: CHONDROITIN SULFATE (BOVINE)\GLUCOSAMINE SULFATE
  5. CALCIUM\CHOLECALCIFEROL [Concomitant]
     Active Substance: CALCIUM\CHOLECALCIFEROL
  6. VEVYE [Concomitant]
     Active Substance: CYCLOSPORINE
  7. LOSARTAN POTASSIUM [Concomitant]
     Active Substance: LOSARTAN POTASSIUM
  8. VITAMIN C [Concomitant]
     Active Substance: ASCORBIC ACID
  9. ASPIRIN [Concomitant]
     Active Substance: ASPIRIN
  10. SERTRALINE HYDROCHLORIDE [Concomitant]
     Active Substance: SERTRALINE HYDROCHLORIDE
  11. ASCORBIC ACID [Concomitant]
     Active Substance: ASCORBIC ACID
  12. OXYBUTYNIN CHLORIDE [Concomitant]
     Active Substance: OXYBUTYNIN CHLORIDE
  13. ATORVASTATIN CALCIUM [Concomitant]
     Active Substance: ATORVASTATIN CALCIUM
  14. FEXOFENADINE HYDROCHLORIDE [Concomitant]
     Active Substance: FEXOFENADINE HYDROCHLORIDE
  15. PERCOCET [Concomitant]
     Active Substance: ACETAMINOPHEN\OXYCODONE HYDROCHLORIDE
  16. DOCUSATE SODIUM [Concomitant]
     Active Substance: DOCUSATE SODIUM
  17. PROLIA [Concomitant]
     Active Substance: DENOSUMAB
  18. AMLODIPINE BESYLATE [Concomitant]
     Active Substance: AMLODIPINE BESYLATE
  19. FAMOTIDINE [Concomitant]
     Active Substance: FAMOTIDINE
  20. GABAPENTIN [Concomitant]
     Active Substance: GABAPENTIN
  21. OMEPRAZOLE [Concomitant]
     Active Substance: OMEPRAZOLE

REACTIONS (2)
  - Eye pain [Unknown]
  - Vision blurred [Recovering/Resolving]
